FAERS Safety Report 8359291-7 (Version None)
Quarter: 2012Q2

REPORT INFORMATION
  Report Type: 
  Country: None (occurrence: None)
  Receive Date: 20120514
  Receipt Date: 20120514
  Transmission Date: 20120825
  Serious: Yes (Hospitalization)
  Sender: FDA-Public Use
  Company Number: None

PATIENT
  Sex: Female
  Weight: 95.5 kg

DRUGS (3)
  1. TAXOL [Suspect]
     Dosage: 350 MG
  2. IFOSFAMIDE [Suspect]
     Dosage: 12 MG
  3. G-CSF (FILGRASTIM, AMGEN) [Suspect]
     Dosage: 6 MG

REACTIONS (2)
  - NEUTROPHIL COUNT DECREASED [None]
  - FATIGUE [None]
